FAERS Safety Report 11141678 (Version 1)
Quarter: 2015Q2

REPORT INFORMATION
  Report Type: Report from Study
  Country: TW (occurrence: TW)
  Receive Date: 20150527
  Receipt Date: 20150527
  Transmission Date: 20150821
  Serious: Yes (Death)
  Sender: FDA-Public Use
  Company Number: TW-SA-2015SA071706

PATIENT

DRUGS (2)
  1. GEMCITABINE [Suspect]
     Active Substance: GEMCITABINE\GEMCITABINE HYDROCHLORIDE
     Indication: BILIARY NEOPLASM
     Dosage: AT A FIXED-DOSE RATE (FDR, 10 MG/M2/MIN)
     Route: 042
  2. OXALIPLATIN. [Suspect]
     Active Substance: OXALIPLATIN
     Indication: BILIARY NEOPLASM
     Dosage: AT A FIXED-DOSE RATE (FDR, 10 MG/M2/MIN)
     Route: 042

REACTIONS (1)
  - Death [Fatal]
